FAERS Safety Report 25184103 (Version 1)
Quarter: 2025Q2

REPORT INFORMATION
  Report Type: Spontaneous
  Country: US (occurrence: None)
  Receive Date: 20250410
  Receipt Date: 20250410
  Transmission Date: 20250716
  Serious: Yes (Hospitalization)
  Sender: FDA-CTU
  Company Number: None

PATIENT
  Age: 53 Year
  Sex: Male
  Weight: 66.2 kg

DRUGS (1)
  1. CISPLATIN [Suspect]
     Active Substance: CISPLATIN
     Dates: end: 20210616

REACTIONS (8)
  - Pyrexia [None]
  - Odynophagia [None]
  - Pharyngitis [None]
  - Haemoptysis [None]
  - Hypophagia [None]
  - Cough [None]
  - Fatigue [None]
  - Hyponatraemia [None]

NARRATIVE: CASE EVENT DATE: 20210621
